FAERS Safety Report 7277315-5 (Version None)
Quarter: 2011Q1

REPORT INFORMATION
  Report Type: 
  Country: None (occurrence: None)
  Receive Date: 20110203
  Receipt Date: 20110203
  Transmission Date: 20110831
  Serious: Yes (Other)
  Sender: FDA-Public Use
  Company Number: None

PATIENT
  Sex: Male

DRUGS (1)
  1. INTRON A [Suspect]
     Indication: BLADDER CANCER
     Dosage: 50MM IU 50MM WEEKLY IV
     Route: 042

REACTIONS (6)
  - DYSURIA [None]
  - HAEMATURIA [None]
  - PYREXIA [None]
  - PELVIC PAIN [None]
  - CHILLS [None]
  - ABDOMINAL PAIN [None]
